FAERS Safety Report 9160977 (Version 3)
Quarter: 2013Q2

REPORT INFORMATION
  Report Type: Spontaneous
  Country: US (occurrence: None)
  Receive Date: 20130215
  Receipt Date: 20130521
  Transmission Date: 20140414
  Serious: Yes (Other)
  Sender: FDA-Public Use
  Company Number: USW201302-000012

PATIENT
  Sex: Female
  Weight: 77.57 kg

DRUGS (10)
  1. APOKYN [Suspect]
     Dosage: 0.1-0.2 ML UPTP 5 TIMES IF NEEDED, PARENTERAL
     Route: 051
     Dates: start: 20121025
  2. CARBIDOPA/LEVODOPA [Concomitant]
  3. COMTAN (ENTACAPONE) (ENTACAPONE) [Concomitant]
  4. AMANTADINE [Concomitant]
  5. SELEGILINE [Concomitant]
  6. LOVASTATIN [Concomitant]
  7. ATENOLOL [Concomitant]
  8. ASPIRIN [Concomitant]
  9. LOSARTAN [Concomitant]
  10. LEVOTHYROXIN [Concomitant]

REACTIONS (5)
  - Convulsion [None]
  - Muscle rigidity [None]
  - Muscle spasms [None]
  - Muscle spasms [None]
  - Dyspnoea [None]
